FAERS Safety Report 5022012-X (Version None)
Quarter: 2006Q2

REPORT INFORMATION
  Report Type: 
  Country: None (occurrence: None)
  Receive Date: 20060609
  Receipt Date: 20060520
  Transmission Date: 20061013
  Serious: Yes (Other)
  Sender: FDA-Public Use
  Company Number: BR-AVENTIS-200612980EU

PATIENT
  Age: 42 Year
  Sex: Male
  Weight: 55 kg

DRUGS (2)
  1. FLAGYL [Suspect]
     Indication: ESCHERICHIA INFECTION
     Dosage: DOSE: 2 TABS
     Route: 048
     Dates: start: 20060519, end: 20060522
  2. DIAZEPAM [Concomitant]
     Indication: ANXIETY
     Dosage: DOSE: 10 MG
     Route: 048

REACTIONS (6)
  - ABDOMINAL PAIN [None]
  - CHILLS [None]
  - DIARRHOEA [None]
  - HALLUCINATION [None]
  - HEADACHE [None]
  - TREMOR [None]
